FAERS Safety Report 16084966 (Version 1)
Quarter: 2019Q2

REPORT INFORMATION
  Report Type: Spontaneous
  Country: US (occurrence: US)
  Receive Date: 20190318
  Receipt Date: 20190318
  Transmission Date: 20190711
  Serious: Yes (Death, Hospitalization)
  Sender: FDA-Public Use
  Company Number: None

PATIENT
  Age: 54 Year
  Sex: Male
  Weight: 108 kg

DRUGS (5)
  1. APIXABAN [Suspect]
     Active Substance: APIXABAN
     Indication: ANTICOAGULANT THERAPY
     Route: 048
  2. LISINOPRIL 2.5 MG [Concomitant]
  3. METOPROLOL TARTRATE 25 MG [Concomitant]
     Active Substance: METOPROLOL TARTRATE
  4. LEVEMIR 25 UNITS [Concomitant]
  5. ATORVASTATION 40 MG [Concomitant]

REACTIONS (4)
  - Unresponsive to stimuli [None]
  - Hydrocephalus [None]
  - Cerebral infarction [None]
  - Haemorrhage intracranial [None]

NARRATIVE: CASE EVENT DATE: 20190313
